FAERS Safety Report 20791058 (Version 1)
Quarter: 2022Q2

REPORT INFORMATION
  Report Type: Spontaneous
  Country: US (occurrence: US)
  Receive Date: 20220505
  Receipt Date: 20220505
  Transmission Date: 20220720
  Serious: Yes (Other)
  Sender: FDA-Public Use
  Company Number: US-BRISTOL-MYERS SQUIBB COMPANY-2022-027844

PATIENT
  Age: 71 Year
  Sex: Female
  Weight: 83.46 kg

DRUGS (1)
  1. POMALYST [Suspect]
     Active Substance: POMALIDOMIDE
     Indication: Plasma cell myeloma
     Dosage: 14D ON 7 DAYS OF
     Route: 048
     Dates: start: 20210319, end: 20220422

REACTIONS (2)
  - Malignant neoplasm progression [Unknown]
  - Off label use [Unknown]
